FAERS Safety Report 11515259 (Version 1)
Quarter: 2015Q3

REPORT INFORMATION
  Report Type: Report from Study
  Country: CA (occurrence: CA)
  Receive Date: 20150916
  Receipt Date: 20150916
  Transmission Date: 20151125
  Serious: Yes (Other)
  Sender: FDA-Public Use
  Company Number: PHHY2014CA075045

PATIENT
  Age: 60 Year
  Sex: Female

DRUGS (3)
  1. ACLASTA [Suspect]
     Active Substance: ZOLEDRONIC ACID
     Indication: OSTEOPOROSIS POSTMENOPAUSAL
     Dosage: 5 MG, UNK
     Route: 042
     Dates: start: 20120810
  2. ACLASTA [Suspect]
     Active Substance: ZOLEDRONIC ACID
     Dosage: 5 MG, UNK
     Route: 042
     Dates: start: 20130809
  3. ACLASTA [Suspect]
     Active Substance: ZOLEDRONIC ACID
     Dosage: 5 MG, UNK
     Route: 042
     Dates: start: 20140805

REACTIONS (7)
  - Rib fracture [Unknown]
  - Feeling cold [Recovered/Resolved]
  - Tongue dry [Not Recovered/Not Resolved]
  - Dysgeusia [Not Recovered/Not Resolved]
  - Chills [Recovered/Resolved]
  - Tremor [Unknown]
  - Drug ineffective [Unknown]

NARRATIVE: CASE EVENT DATE: 20120813
